FAERS Safety Report 9021051 (Version 1)
Quarter: 2013Q1

REPORT INFORMATION
  Report Type: Spontaneous
  Country: US (occurrence: US)
  Receive Date: 20130119
  Receipt Date: 20130119
  Transmission Date: 20140127
  Serious: No
  Sender: FDA-Public Use
  Company Number: US-ALLERGAN-1204471US

PATIENT
  Age: 19 Year
  Sex: Female

DRUGS (10)
  1. BOTOX? [Suspect]
     Indication: MIGRAINE
     Dosage: 140 UNITS, SINGLE
     Route: 030
     Dates: start: 201203, end: 201203
  2. BOTOX? [Suspect]
     Dosage: 120 UNK, SINGLE
     Route: 030
     Dates: start: 20110916, end: 20110916
  3. BOTOX? [Suspect]
     Dosage: 130 UNK, SINGLE
     Dates: start: 20111116, end: 20111116
  4. BOTOX? [Suspect]
  5. FLEXERIL                           /00428402/ [Concomitant]
     Indication: MIGRAINE
     Dosage: 10 MG, QHS
  6. FLEXERIL                           /00428402/ [Concomitant]
     Indication: FIBROMYALGIA
  7. CYMBALTA [Concomitant]
     Indication: MIGRAINE
     Dosage: UNK
     Route: 048
  8. CYMBALTA [Concomitant]
     Indication: FIBROMYALGIA
  9. LYRICA [Concomitant]
     Indication: MIGRAINE
     Dosage: UNK
     Route: 048
  10. LYRICA [Concomitant]
     Indication: FIBROMYALGIA

REACTIONS (2)
  - Hypoaesthesia [Unknown]
  - Musculoskeletal pain [Not Recovered/Not Resolved]
